FAERS Safety Report 4779832-6 (Version None)
Quarter: 2005Q3

REPORT INFORMATION
  Report Type: 
  Country: None (occurrence: None)
  Receive Date: 20050914
  Receipt Date: 20050629
  Transmission Date: 20060218
  Serious: Yes (Hospitalization)
  Sender: FDA-Public Use
  Company Number: 163-20785-05070307

PATIENT
  Age: 57 Year
  Sex: Male
  Weight: 63.5036 kg

DRUGS (3)
  1. THALOMID [Suspect]
     Indication: MULTIPLE MYELOMA
     Dosage: 100 MG, QHS, ORAL
     Route: 048
     Dates: start: 20050118
  2. DEXAMETHASONE [Suspect]
     Indication: MULTIPLE MYELOMA
     Dosage: 20 MG, WEEKLY
     Dates: start: 20050118
  3. BIAXIN [Suspect]
     Indication: MULTIPLE MYELOMA

REACTIONS (1)
  - PNEUMONIA [None]
